FAERS Safety Report 7352076-X (Version None)
Quarter: 2011Q1

REPORT INFORMATION
  Report Type: 
  Country: None (occurrence: None)
  Receive Date: 20110315
  Receipt Date: 20110310
  Transmission Date: 20110831
  Serious: Yes (Hospitalization)
  Sender: FDA-Public Use
  Company Number: GB-B.I. PHARMACEUTICALS,INC./RIDGEFIELD-2010-UK-01159UK

PATIENT
  Sex: Female

DRUGS (2)
  1. TED STOCKINGS [Concomitant]
  2. PRADAXA [Suspect]
     Indication: EMBOLISM VENOUS
     Dosage: 150 MG

REACTIONS (1)
  - DEEP VEIN THROMBOSIS [None]
